FAERS Safety Report 8406533-5 (Version None)
Quarter: 2012Q2

REPORT INFORMATION
  Report Type: 
  Country: None (occurrence: None)
  Receive Date: 20120604
  Receipt Date: 20120524
  Transmission Date: 20120825
  Serious: Yes (Other)
  Sender: FDA-Public Use
  Company Number: US-JNJFOC-20120519370

PATIENT
  Sex: Female
  Weight: 69.85 kg

DRUGS (4)
  1. DURAGESIC-100 [Suspect]
     Route: 062
  2. ASPIRIN [Concomitant]
     Indication: ANTICOAGULANT THERAPY
     Route: 048
  3. TOPAMAX [Suspect]
     Indication: CONVULSION
     Route: 048
  4. DURAGESIC-100 [Suspect]
     Indication: CENTRAL PAIN SYNDROME
     Route: 062

REACTIONS (7)
  - PAIN [None]
  - PRODUCT QUALITY ISSUE [None]
  - CEREBROVASCULAR ACCIDENT [None]
  - DEAFNESS [None]
  - DRUG DOSE OMISSION [None]
  - DISTURBANCE IN ATTENTION [None]
  - CONVULSION [None]
